FAERS Safety Report 8102472-8 (Version None)
Quarter: 2012Q1

REPORT INFORMATION
  Report Type: 
  Country: None (occurrence: None)
  Receive Date: 20120201
  Receipt Date: 20120123
  Transmission Date: 20120608
  Serious: Yes (Hospitalization)
  Sender: FDA-Public Use
  Company Number: DE-ELI_LILLY_AND_COMPANY-DE201201007200

PATIENT
  Sex: Female

DRUGS (4)
  1. BISOPROLOL [Concomitant]
  2. PANTOPRAZOLE [Concomitant]
  3. CYMBALTA [Suspect]
     Indication: MAJOR DEPRESSION
     Dosage: 30 MG, UNKNOWN
     Route: 048
     Dates: start: 20080101
  4. CYMBALTA [Suspect]
     Dosage: 60 MG, UNKNOWN
     Route: 048
     Dates: end: 20120101

REACTIONS (3)
  - TRANSAMINASES INCREASED [None]
  - BILIARY DYSKINESIA [None]
  - NAUSEA [None]
